FAERS Safety Report 8027955-0 (Version None)
Quarter: 2012Q1

REPORT INFORMATION
  Report Type: 
  Country: None (occurrence: None)
  Receive Date: 20120106
  Receipt Date: 20111230
  Transmission Date: 20120608
  Serious: Yes (Hospitalization)
  Sender: FDA-Public Use
  Company Number: US-BAYER-201034258NA

PATIENT
  Age: 37 Year
  Sex: Female

DRUGS (16)
  1. YAZ [Suspect]
     Indication: ENDOMETRIOSIS
  2. XANAX [Concomitant]
  3. ZOLOFT [Concomitant]
  4. YAZ [Suspect]
     Indication: PREMENSTRUAL SYNDROME
     Route: 048
  5. LEXAPRO [Concomitant]
  6. AMBIEN [Concomitant]
  7. IMITREX [Concomitant]
  8. GEMFIBROZIL [Concomitant]
  9. SINGULAIR [Concomitant]
  10. PRILOSEC [Concomitant]
  11. HYDROXYZINE [Concomitant]
  12. ZANTAC [Concomitant]
  13. TORADOL [Concomitant]
  14. ALPRAZOLAM [Concomitant]
     Dosage: UNK UNK, BID
  15. KETOROLAC TROMETHAMINE [Concomitant]
  16. DILAUDID [Concomitant]

REACTIONS (6)
  - PULMONARY EMBOLISM [None]
  - CHOLECYSTECTOMY [None]
  - PAIN [None]
  - PANCREATITIS [None]
  - CHOLECYSTITIS CHRONIC [None]
  - ANXIETY [None]
